FAERS Safety Report 5956657-7 (Version None)
Quarter: 2008Q4

REPORT INFORMATION
  Report Type: 
  Country: None (occurrence: None)
  Receive Date: 20081031
  Receipt Date: 20080731
  Transmission Date: 20090506
  Serious: No
  Sender: FDA-Public Use
  Company Number: 2008PV036330

PATIENT
  Age: 54 Year
  Sex: Female
  Weight: 77.1115 kg

DRUGS (6)
  1. SYMLIN [Suspect]
     Indication: GLUCOSE TOLERANCE IMPAIRED
     Dosage: 60 MCG;BID;SC : 30 MCG;SC
     Route: 058
     Dates: start: 20080301, end: 20080401
  2. SYMLIN [Suspect]
     Indication: WEIGHT CONTROL
     Dosage: 60 MCG;BID;SC : 30 MCG;SC
     Route: 058
     Dates: start: 20080301, end: 20080401
  3. SYMLIN [Suspect]
     Indication: GLUCOSE TOLERANCE IMPAIRED
     Dosage: 60 MCG;BID;SC : 30 MCG;SC
     Route: 058
     Dates: start: 20080401
  4. SYMLIN [Suspect]
     Indication: WEIGHT CONTROL
     Dosage: 60 MCG;BID;SC : 30 MCG;SC
     Route: 058
     Dates: start: 20080401
  5. THYROID MEDICATION [Concomitant]
  6. WATER PILL [Concomitant]

REACTIONS (1)
  - HERNIA [None]
